FAERS Safety Report 4995170-0 (Version None)
Quarter: 2006Q2

REPORT INFORMATION
  Report Type: 
  Country: None (occurrence: None)
  Receive Date: 20060508
  Receipt Date: 20051129
  Transmission Date: 20061013
  Serious: Yes (Hospitalization)
  Sender: FDA-Public Use
  Company Number: US-MERCK-0511USA04504

PATIENT
  Age: 62 Year
  Sex: Male
  Weight: 89 kg

DRUGS (4)
  1. VIOXX [Suspect]
     Indication: ARTHRITIS
     Route: 048
     Dates: start: 20000901, end: 20000101
  2. ASPIRIN [Concomitant]
     Route: 065
  3. GLIPIZIDE [Concomitant]
     Route: 065
  4. DILTIAZEM HYDROCHLORIDE [Concomitant]
     Route: 065

REACTIONS (9)
  - BLOOD GLUCOSE DECREASED [None]
  - BRAIN STEM INFARCTION [None]
  - CEREBRAL INFARCTION [None]
  - DUODENAL ULCER [None]
  - GASTRITIS [None]
  - HYPERTENSION [None]
  - PROSTATIC DISORDER [None]
  - RENAL FAILURE CHRONIC [None]
  - URINARY TRACT INFECTION [None]
